FAERS Safety Report 20758775 (Version 1)
Quarter: 2022Q2

REPORT INFORMATION
  Report Type: Other
  Country: CA (occurrence: CA)
  Receive Date: 20220427
  Receipt Date: 20220427
  Transmission Date: 20220720
  Serious: No
  Sender: FDA-Public Use
  Company Number: CA-LUPIN PHARMACEUTICALS INC.-2022-05919

PATIENT
  Age: 22 Year
  Sex: Female

DRUGS (1)
  1. JENCYCLA [Suspect]
     Active Substance: NORETHINDRONE
     Indication: Oral contraception
     Dosage: 1 DOSAGE FORM, QD
     Route: 048

REACTIONS (1)
  - Breast pain [Not Recovered/Not Resolved]
